FAERS Safety Report 24592612 (Version 1)
Quarter: 2024Q4

REPORT INFORMATION
  Report Type: Spontaneous
  Country: US (occurrence: US)
  Receive Date: 20241108
  Receipt Date: 20241108
  Transmission Date: 20250115
  Serious: No
  Sender: CHATTEM
  Company Number: US-OPELLA-2024OHG037428

PATIENT

DRUGS (1)
  1. ALLEGRA-D 24 HOUR [Suspect]
     Active Substance: FEXOFENADINE HYDROCHLORIDE\PSEUDOEPHEDRINE HYDROCHLORIDE
     Indication: Product used for unknown indication
     Dosage: 180 MG+240 MG/ TOOK IT TWICE

REACTIONS (5)
  - Anxiety [Unknown]
  - Insomnia [Unknown]
  - Euphoric mood [Unknown]
  - Malaise [Unknown]
  - Product label issue [Unknown]
